FAERS Safety Report 15953645 (Version 1)
Quarter: 2019Q1

REPORT INFORMATION
  Report Type: Spontaneous
  Country: US (occurrence: US)
  Receive Date: 20190212
  Receipt Date: 20190212
  Transmission Date: 20190417
  Serious: Yes (Other)
  Sender: FDA-Public Use
  Company Number: US-GLAXOSMITHKLINE-US2019018281

PATIENT
  Sex: Female

DRUGS (1)
  1. NUCALA [Suspect]
     Active Substance: MEPOLIZUMAB
     Indication: SYSTEMIC LUPUS ERYTHEMATOSUS
     Route: 058

REACTIONS (6)
  - Joint swelling [Recovered/Resolved]
  - Neuropathy peripheral [Recovered/Resolved]
  - Anxiety [Recovered/Resolved]
  - Feeling abnormal [Recovered/Resolved]
  - Systemic lupus erythematosus [Recovered/Resolved]
  - Pain [Recovered/Resolved]
